FAERS Safety Report 6841673-3 (Version None)
Quarter: 2010Q3

REPORT INFORMATION
  Report Type: 
  Country: None (occurrence: None)
  Receive Date: 20100714
  Receipt Date: 20070714
  Transmission Date: 20110219
  Serious: No
  Sender: FDA-Public Use
  Company Number: US-PFIZER INC-2007059949

PATIENT
  Sex: Male
  Weight: 100 kg

DRUGS (4)
  1. CHANTIX [Suspect]
     Indication: SMOKING CESSATION THERAPY
     Dates: start: 20070620
  2. VITAMINS [Concomitant]
  3. MINERAL TAB [Concomitant]
  4. GENERAL NUTRIENTS [Concomitant]

REACTIONS (1)
  - SLUGGISHNESS [None]
